FAERS Safety Report 10181190 (Version 2)
Quarter: 2014Q2

REPORT INFORMATION
  Report Type: Spontaneous
  Country: US (occurrence: US)
  Receive Date: 20140519
  Receipt Date: 20140519
  Transmission Date: 20141212
  Serious: No
  Sender: FDA-Public Use
  Company Number: US-AMGEN INC.-USASP2014024768

PATIENT
  Sex: Female

DRUGS (3)
  1. PROLIA [Suspect]
     Indication: OSTEOPOROSIS POSTMENOPAUSAL
     Dosage: UNK
     Route: 065
  2. CALCIUM [Concomitant]
     Dosage: 1500 MG, QD
  3. VITAMIN D3 [Concomitant]
     Dosage: UNK

REACTIONS (2)
  - Exostosis [Recovered/Resolved]
  - Gait disturbance [Recovered/Resolved]
